FAERS Safety Report 9849196 (Version 1)
Quarter: 2014Q1

REPORT INFORMATION
  Report Type: Spontaneous
  Country: GB (occurrence: None)
  Receive Date: 20140124
  Receipt Date: 20140124
  Transmission Date: 20141002
  Serious: No
  Sender: FDA-Public Use
  Company Number: B0961790A

PATIENT
  Age: 36 Year
  Sex: Female
  Weight: 44.91 kg

DRUGS (1)
  1. PAROXETINE HYDROCHLORIDE [Suspect]
     Indication: DEPRESSION
     Route: 048
     Dates: start: 20131106

REACTIONS (12)
  - Sensory disturbance [None]
  - Decreased appetite [None]
  - Insomnia [None]
  - Palpitations [None]
  - Anxiety [None]
  - Nervousness [None]
  - Phonophobia [None]
  - Hallucination [None]
  - Suicidal ideation [None]
  - Hallucination, auditory [None]
  - Ear discomfort [None]
  - Loss of employment [None]
